FAERS Safety Report 20878560 (Version 1)
Quarter: 2022Q2

REPORT INFORMATION
  Report Type: Spontaneous
  Country: None (occurrence: GB)
  Receive Date: 20220526
  Receipt Date: 20220526
  Transmission Date: 20220721
  Serious: Yes (Other)
  Sender: FDA-Public Use
  Company Number: GB-B.Braun Medical Inc.-2129229

PATIENT
  Age: 29 Year
  Sex: Male

DRUGS (18)
  1. ACETAMINOPHEN [Suspect]
     Active Substance: ACETAMINOPHEN
  2. AMITRIPTYLINE [Suspect]
     Active Substance: AMITRIPTYLINE
  3. BOTULINUM TOXIN TYPE A [Suspect]
     Active Substance: BOTULINUM TOXIN TYPE A
  4. CYANOCOBALAMIN [Suspect]
     Active Substance: CYANOCOBALAMIN
  5. DOSULEPIN HYDROCHLORIDE [Suspect]
     Active Substance: DOTHIEPIN HYDROCHLORIDE
  6. DICLOFENAC SODIUM [Suspect]
     Active Substance: DICLOFENAC SODIUM
  7. IBUPROFEN [Suspect]
     Active Substance: IBUPROFEN
  8. TRAZODONE HYDROCHLORIDE [Suspect]
     Active Substance: TRAZODONE HYDROCHLORIDE
  9. IBUPROFEN [Suspect]
     Active Substance: IBUPROFEN
  10. PREGABALIN [Suspect]
     Active Substance: PREGABALIN
  11. PROTHIADEN [Suspect]
     Active Substance: DOTHIEPIN HYDROCHLORIDE
  12. PYRIDOXINE HYDROCHLORIDE [Suspect]
     Active Substance: PYRIDOXINE HYDROCHLORIDE
  13. SERTRALINE [Suspect]
     Active Substance: SERTRALINE HYDROCHLORIDE
  14. THIAMINE HYDROCHLORIDE [Suspect]
     Active Substance: THIAMINE HYDROCHLORIDE
  15. TOPIRAMATE [Suspect]
     Active Substance: TOPIRAMATE
  16. TRAZODONE HYDROCHLORIDE [Suspect]
     Active Substance: TRAZODONE HYDROCHLORIDE
  17. TRAZODONE HYDROCHLORIDE [Suspect]
     Active Substance: TRAZODONE HYDROCHLORIDE
  18. VITAMIN B COMPLEX [Suspect]
     Active Substance: CYANOCOBALAMIN\DEXPANTHENOL\NIACINAMIDE\PYRIDOXINE HYDROCHLORIDE\RIBOFLAVIN 5^-PHOSPHATE SODIUM\THIA

REACTIONS (6)
  - Neck pain [Unknown]
  - Headache [None]
  - Migraine [None]
  - Pain [None]
  - Head discomfort [None]
  - Back pain [None]
